FAERS Safety Report 9759552 (Version 2)
Quarter: 2015Q3

REPORT INFORMATION
  Report Type: Spontaneous
  Country: US (occurrence: US)
  Receive Date: 20131216
  Receipt Date: 20150805
  Transmission Date: 20151125
  Serious: No
  Sender: FDA-Public Use
  Company Number: US-GILEAD-2010-0028032

PATIENT
  Age: 78 Year
  Sex: Female
  Weight: 71.21 kg

DRUGS (20)
  1. LOPRESSOR [Concomitant]
     Active Substance: METOPROLOL TARTRATE
  2. PRILOSEC [Concomitant]
     Active Substance: OMEPRAZOLE MAGNESIUM
  3. TRENTAL [Concomitant]
     Active Substance: PENTOXIFYLLINE
  4. PREDNISONE. [Concomitant]
     Active Substance: PREDNISONE
  5. LETAIRIS [Suspect]
     Active Substance: AMBRISENTAN
     Indication: PULMONARY ARTERIAL HYPERTENSION
     Route: 048
     Dates: start: 20090512
  6. BACTRIM DS [Concomitant]
     Active Substance: SULFAMETHOXAZOLE\TRIMETHOPRIM
  7. ASPIRIN. [Concomitant]
     Active Substance: ASPIRIN
  8. AMBIEN [Concomitant]
     Active Substance: ZOLPIDEM TARTRATE
  9. FLOMAX [Concomitant]
     Active Substance: TAMSULOSIN HYDROCHLORIDE
  10. FOSAMAX [Concomitant]
     Active Substance: ALENDRONATE SODIUM
  11. COUMADIN [Concomitant]
     Active Substance: WARFARIN SODIUM
  12. CALAN SR [Concomitant]
     Active Substance: VERAPAMIL HYDROCHLORIDE
  13. CARDIZEM [Concomitant]
     Active Substance: DILTIAZEM HYDROCHLORIDE
  14. XANAX [Concomitant]
     Active Substance: ALPRAZOLAM
  15. SYNTHROID [Concomitant]
     Active Substance: LEVOTHYROXINE SODIUM
  16. ZOLOFT [Concomitant]
     Active Substance: SERTRALINE HYDROCHLORIDE
  17. CALTRATE W/D [Concomitant]
  18. CENTRUM SLIVER [Concomitant]
  19. PULMOCORT [Concomitant]
  20. ELAVIL [Concomitant]
     Active Substance: AMITRIPTYLINE HYDROCHLORIDE

REACTIONS (1)
  - Pneumonia [Unknown]
